FAERS Safety Report 6594200-2 (Version None)
Quarter: 2010Q1

REPORT INFORMATION
  Report Type: 
  Country: None (occurrence: None)
  Receive Date: 20100222
  Receipt Date: 20100217
  Transmission Date: 20100710
  Serious: Yes (Hospitalization)
  Sender: FDA-Public Use
  Company Number: DE-ROCHE-686377

PATIENT
  Age: 59 Year
  Sex: Female

DRUGS (1)
  1. HERCEPTIN [Suspect]
     Route: 065
     Dates: start: 20090630

REACTIONS (1)
  - PSORIASIS [None]
